FAERS Safety Report 10469297 (Version 2)
Quarter: 2014Q3

REPORT INFORMATION
  Report Type: Spontaneous
  Country: US (occurrence: US)
  Receive Date: 20140923
  Receipt Date: 20140927
  Transmission Date: 20150326
  Serious: Yes (Hospitalization)
  Sender: FDA-Public Use
  Company Number: US-PERRIGO-14US009175

PATIENT
  Age: 48 Year
  Sex: Female
  Weight: 58.96 kg

DRUGS (4)
  1. ASPIRIN 325MG COATED 416 [Suspect]
     Active Substance: ASPIRIN
     Indication: HEADACHE
     Dosage: 325 MG, QD
     Route: 048
     Dates: start: 20140602, end: 201407
  2. GABAPENTIN. [Concomitant]
     Active Substance: GABAPENTIN
     Indication: CONVULSION
     Dosage: UNK
     Route: 065
     Dates: start: 201301
  3. ASPIRIN 325MG COATED 416 [Suspect]
     Active Substance: ASPIRIN
     Indication: CEREBROVASCULAR ACCIDENT PROPHYLAXIS
     Dosage: 325 MG, PRN
     Route: 048
     Dates: start: 201406, end: 201407
  4. TOPIRAMATE. [Concomitant]
     Active Substance: TOPIRAMATE
     Indication: CONVULSION
     Dosage: UNK
     Route: 065
     Dates: start: 201301

REACTIONS (7)
  - Hypoaesthesia [Recovered/Resolved]
  - Transient ischaemic attack [Recovered/Resolved]
  - Convulsion [Unknown]
  - Drug ineffective [Unknown]
  - Dysarthria [Recovered/Resolved]
  - Incorrect drug administration duration [Recovered/Resolved]
  - Drug ineffective for unapproved indication [Unknown]

NARRATIVE: CASE EVENT DATE: 201406
